FAERS Safety Report 9279490 (Version 3)
Quarter: 2013Q3

REPORT INFORMATION
  Report Type: Report from Study
  Country: US (occurrence: US)
  Receive Date: 20130508
  Receipt Date: 20130731
  Transmission Date: 20140515
  Serious: Yes (Other)
  Sender: FDA-Public Use
  Company Number: US-US-EMD SERONO, INC.-7209447

PATIENT
  Age: 48 Year
  Sex: Female

DRUGS (5)
  1. REBIF [Suspect]
     Indication: MULTIPLE SCLEROSIS
     Dates: start: 20060119, end: 20120410
  2. REBIF [Suspect]
     Route: 058
     Dates: start: 20130327
  3. TYLENOL                            /00020001/ [Concomitant]
     Indication: PREMEDICATION
  4. TYLENOL PM                         /01088101/ [Concomitant]
     Indication: PREMEDICATION
  5. LODINE [Concomitant]
     Indication: ARTHRALGIA

REACTIONS (7)
  - Cystitis [Unknown]
  - Urinary tract infection [Unknown]
  - Muscular weakness [Unknown]
  - Feeling abnormal [Unknown]
  - Fatigue [Unknown]
  - Injection site urticaria [Unknown]
  - Injection site pruritus [Unknown]
